FAERS Safety Report 8790108 (Version 2)
Quarter: 2012Q4

REPORT INFORMATION
  Report Type: 
  Country: JP (occurrence: JP)
  Receive Date: 20120917
  Receipt Date: 20120928
  Transmission Date: 20130627
  Serious: Yes (Other)
  Sender: FDA-Public Use
  Company Number: JP-SANOFI-AVENTIS-2012SA067397

PATIENT
  Age: 66 Year
  Sex: Female

DRUGS (6)
  1. ALLEGRA [Suspect]
     Indication: COMMON COLD
     Route: 048
     Dates: start: 20120903, end: 20120906
  2. CLOFEDANOL [Concomitant]
     Route: 048
  3. CARBOCISTEINE [Concomitant]
     Route: 048
  4. SODIUM GUALENATE [Concomitant]
     Dosage: route: BU
  5. AZITHROMYCIN [Concomitant]
     Route: 048
  6. LOXOPROFEN SODIUM [Concomitant]
     Route: 048

REACTIONS (1)
  - Angle closure glaucoma [Recovered/Resolved]
